FAERS Safety Report 8219884-4 (Version None)
Quarter: 2012Q1

REPORT INFORMATION
  Report Type: 
  Country: None (occurrence: None)
  Receive Date: 20120319
  Receipt Date: 20120309
  Transmission Date: 20120608
  Serious: Yes (Hospitalization, Other)
  Sender: FDA-Public Use
  Company Number: US-ASTRAZENECA-2011SE29818

PATIENT
  Age: 82 Year
  Sex: Male

DRUGS (3)
  1. NEXIUM [Suspect]
     Route: 048
  2. AFINITOR PILLS [Concomitant]
  3. TOPROL-XL [Suspect]
     Route: 048

REACTIONS (9)
  - NEOPLASM MALIGNANT [None]
  - SWELLING [None]
  - PNEUMONIA [None]
  - DRUG DOSE OMISSION [None]
  - RENAL FAILURE [None]
  - PERICARDIAL EFFUSION [None]
  - ABDOMINAL DISCOMFORT [None]
  - MYOCARDIAL INFARCTION [None]
  - TREATMENT NONCOMPLIANCE [None]
